FAERS Safety Report 18866619 (Version 1)
Quarter: 2021Q1

REPORT INFORMATION
  Report Type: Spontaneous
  Country: FR (occurrence: FR)
  Receive Date: 20210209
  Receipt Date: 20210209
  Transmission Date: 20210420
  Serious: Yes (Other)
  Sender: FDA-Public Use
  Company Number: FR-MYLANLABS-2021M1007705

PATIENT
  Age: 46 Year
  Sex: Female

DRUGS (3)
  1. ATAZANAVIR + RITONAVIR [Concomitant]
     Active Substance: ATAZANAVIR\RITONAVIR
     Indication: HIV INFECTION
     Dosage: UNK
     Route: 065
     Dates: start: 2009
  2. EMTRICITABINE + TENOFOVIR DISOPROXIL FUMARATE [Concomitant]
     Active Substance: EMTRICITABINE\TENOFOVIR DISOPROXIL FUMARATE
     Indication: HIV INFECTION
     Dosage: UNK
     Route: 065
     Dates: start: 2009
  3. PREDNISONE. [Suspect]
     Active Substance: PREDNISONE
     Indication: STILL^S DISEASE
     Dosage: 30 MILLIGRAM, QD 0.5 MG/KG/DAY...
     Route: 048
     Dates: start: 2018

REACTIONS (1)
  - Steroid dependence [Recovered/Resolved]

NARRATIVE: CASE EVENT DATE: 2018
